FAERS Safety Report 7398386-1 (Version None)
Quarter: 2011Q2

REPORT INFORMATION
  Report Type: 
  Country: None (occurrence: None)
  Receive Date: 20110406
  Receipt Date: 20090227
  Transmission Date: 20111010
  Serious: Yes (Other)
  Sender: FDA-Public Use
  Company Number: US-BAYER-200914360NA

PATIENT
  Sex: Male
  Weight: 84.807 kg

DRUGS (21)
  1. TRASYLOL [Suspect]
     Indication: CORONARY ARTERY BYPASS
     Dosage: 1 ML, TEST DOSE
     Route: 042
     Dates: start: 20030829, end: 20030829
  2. NITROGLYCERIN [Concomitant]
     Dosage: UNK
     Route: 060
     Dates: start: 20021115
  3. MACRODANTIN [Concomitant]
     Dosage: 50 MG, BID
     Dates: start: 20021115
  4. LACTATED RINGER'S [Concomitant]
  5. CELEBREX [Concomitant]
     Dosage: 200 MG, QD
     Route: 048
  6. FLUOXETINE [Concomitant]
     Dosage: 20 MG, QD
     Dates: start: 20030131
  7. TORSEMIDE [Concomitant]
     Dosage: 100 MG, QD
     Route: 048
     Dates: start: 20021210
  8. VERSED [Concomitant]
  9. IMDUR [Concomitant]
     Dosage: 30 MG, QD, 0.5 TAB DAILY
     Route: 048
     Dates: start: 20030919
  10. AMBIEN [Concomitant]
     Dosage: 5 MG, UNK
     Route: 048
     Dates: start: 20021115
  11. DOPAMINE [Concomitant]
  12. NITROUS OXIDE [Concomitant]
  13. ACETYLSALICYLIC ACID SRT [Concomitant]
     Dosage: 81 MG, QD
     Route: 048
     Dates: start: 20010607
  14. FOLTX [Concomitant]
     Dosage: UNK UNK, QD
     Route: 048
     Dates: start: 20030131
  15. FENTANYL [Concomitant]
  16. PRAVACHOL [Concomitant]
     Dosage: 40 MG, QD
     Route: 048
     Dates: start: 20021115
  17. LIDOCAINE [Concomitant]
  18. COREG [Concomitant]
     Dosage: 3.125 MG, QD
     Route: 048
     Dates: start: 20030131
  19. K-DUR [Concomitant]
     Dosage: 10 MEQ, QD
     Route: 048
     Dates: start: 20021115
  20. GLYBURIDE [Concomitant]
     Dosage: 5 MG, BID
     Route: 048
     Dates: start: 20021115
  21. GLUCOPHAGE [Concomitant]
     Dosage: 1000 MG, BID
     Route: 048
     Dates: start: 20030131

REACTIONS (11)
  - RENAL IMPAIRMENT [None]
  - UNEVALUABLE EVENT [None]
  - FEAR [None]
  - ANXIETY [None]
  - PAIN [None]
  - INJURY [None]
  - ANHEDONIA [None]
  - RENAL FAILURE [None]
  - RENAL INJURY [None]
  - EMOTIONAL DISTRESS [None]
  - STRESS [None]
